FAERS Safety Report 8224366-X (Version None)
Quarter: 2012Q1

REPORT INFORMATION
  Report Type: 
  Country: None (occurrence: None)
  Receive Date: 20120320
  Receipt Date: 20120320
  Transmission Date: 20120608
  Serious: Yes (Hospitalization)
  Sender: FDA-Public Use
  Company Number: None

PATIENT
  Age: 29 Year
  Sex: Male
  Weight: 62.1 kg

DRUGS (1)
  1. ARIPIPRAZOLE [Suspect]
     Indication: BIPOLAR I DISORDER
     Dosage: 20 MG EVERY DAY PO
     Route: 048
     Dates: start: 20110225

REACTIONS (6)
  - PAIN IN EXTREMITY [None]
  - RHABDOMYOLYSIS [None]
  - FALL [None]
  - ARTHRALGIA [None]
  - BACK PAIN [None]
  - NEUROLEPTIC MALIGNANT SYNDROME [None]
